FAERS Safety Report 24980289 (Version 1)
Quarter: 2025Q1

REPORT INFORMATION
  Report Type: Spontaneous
  Country: US (occurrence: US)
  Receive Date: 20250218
  Receipt Date: 20250218
  Transmission Date: 20250409
  Serious: Yes (Other)
  Sender: BAYER HEALTHCARE LLC
  Company Number: US-BAYER-2025A018142

PATIENT
  Age: 85 Year
  Sex: Male

DRUGS (3)
  1. CORICIDIN HBP MAXIMUM STRENGTH COLD AND FLU DAY AND NIGHT [Suspect]
     Active Substance: ACETAMINOPHEN\DEXTROMETHORPHAN HYDROBROMIDE\DOXYLAMINE SUCCINATE\GUAIFENESIN
     Indication: Hypersensitivity
     Dosage: 1 DF, QD
     Route: 048
     Dates: start: 20250206, end: 20250206
  2. CORICIDIN HBP MAXIMUM STRENGTH COLD AND FLU DAY AND NIGHT [Suspect]
     Active Substance: ACETAMINOPHEN\DEXTROMETHORPHAN HYDROBROMIDE\DOXYLAMINE SUCCINATE\GUAIFENESIN
     Indication: Nasopharyngitis
  3. CORICIDIN HBP COLD AND FLU [Concomitant]
     Active Substance: ACETAMINOPHEN\CHLORPHENIRAMINE MALEATE

REACTIONS (2)
  - Foreign body in throat [Recovered/Resolved]
  - Wrong technique in product usage process [None]

NARRATIVE: CASE EVENT DATE: 20250206
